FAERS Safety Report 14350039 (Version 1)
Quarter: 2018Q1

REPORT INFORMATION
  Report Type: Report from Study
  Country: US (occurrence: US)
  Receive Date: 20180104
  Receipt Date: 20180104
  Transmission Date: 20180509
  Serious: Yes (Death, Hospitalization, Disabling)
  Sender: FDA-Public Use
  Company Number: US-BAYER-2017-218454

PATIENT
  Age: 36 Year
  Sex: Male

DRUGS (1)
  1. BETASERON [Suspect]
     Active Substance: INTERFERON BETA-1B
     Indication: SECONDARY PROGRESSIVE MULTIPLE SCLEROSIS
     Dosage: 1 ML, QOD
     Route: 058
     Dates: start: 20120814, end: 20171127

REACTIONS (6)
  - Lack of injection site rotation [Not Recovered/Not Resolved]
  - Skin disorder [Not Recovered/Not Resolved]
  - Death [Fatal]
  - Post procedural complication [Not Recovered/Not Resolved]
  - Quadriplegia [Not Recovered/Not Resolved]
  - Pneumonia [None]

NARRATIVE: CASE EVENT DATE: 20151201
